FAERS Safety Report 22528830 (Version 1)
Quarter: 2023Q2

REPORT INFORMATION
  Report Type: Spontaneous
  Country: FR (occurrence: FR)
  Receive Date: 20230607
  Receipt Date: 20230607
  Transmission Date: 20230722
  Serious: No
  Sender: FDA-Public Use
  Company Number: FR-ALKEM LABORATORIES LIMITED-FR-ALKEM-2023-03438

PATIENT
  Age: 38 Year
  Sex: Male

DRUGS (4)
  1. TACROLIMUS [Suspect]
     Active Substance: TACROLIMUS
     Indication: Neutrophilic dermatosis
     Dosage: UNK
     Route: 061
  2. TACROLIMUS [Suspect]
     Active Substance: TACROLIMUS
     Indication: Cutaneous lupus erythematosus
  3. HYDROXYCHLOROQUINE [Concomitant]
     Active Substance: HYDROXYCHLOROQUINE
     Indication: Neutrophilic dermatosis
     Dosage: UNK
     Route: 065
  4. HYDROXYCHLOROQUINE [Concomitant]
     Active Substance: HYDROXYCHLOROQUINE
     Indication: Cutaneous lupus erythematosus

REACTIONS (1)
  - Therapy non-responder [Unknown]
